FAERS Safety Report 8359620-4 (Version None)
Quarter: 2012Q2

REPORT INFORMATION
  Report Type: 
  Country: None (occurrence: None)
  Receive Date: 20120515
  Receipt Date: 20120509
  Transmission Date: 20120825
  Serious: Yes (Hospitalization, Other)
  Sender: FDA-Public Use
  Company Number: US-PFIZER INC-2011286476

PATIENT
  Sex: Female

DRUGS (4)
  1. DILANTIN-125 [Suspect]
     Dosage: UNK
  2. CALCIUM [Concomitant]
     Indication: SUPPLEMENTATION THERAPY
     Dosage: UNK
  3. POTASSIUM [Concomitant]
     Indication: SUPPLEMENTATION THERAPY
     Dosage: UNK
  4. HUMIRA [Suspect]
     Indication: RHEUMATOID ARTHRITIS
     Dosage: 40 MG/0.8 ML
     Dates: end: 20061001

REACTIONS (18)
  - RHEUMATOID ARTHRITIS [None]
  - WEIGHT INCREASED [None]
  - CONFUSIONAL STATE [None]
  - IMPAIRED SELF-CARE [None]
  - MOVEMENT DISORDER [None]
  - ABNORMAL BEHAVIOUR [None]
  - AMNESIA [None]
  - ARTHRALGIA [None]
  - SUBDURAL EMPYEMA [None]
  - APALLIC SYNDROME [None]
  - BACK PAIN [None]
  - UNEVALUABLE EVENT [None]
  - HEADACHE [None]
  - SINUSITIS [None]
  - APHASIA [None]
  - SPEECH DISORDER [None]
  - ACTIVITIES OF DAILY LIVING IMPAIRED [None]
  - MOBILITY DECREASED [None]
